FAERS Safety Report 9057635 (Version 1)
Quarter: 2013Q1

REPORT INFORMATION
  Report Type: Spontaneous
  Country: US (occurrence: None)
  Receive Date: 20130204
  Receipt Date: 20130204
  Transmission Date: 20140127
  Serious: Yes (Hospitalization)
  Sender: FDA-Public Use
  Company Number: None

PATIENT
  Age: 75 Year
  Sex: Male
  Weight: 72.5 kg

DRUGS (15)
  1. HYDROCODONE/APAP [Suspect]
     Indication: PAIN
     Route: 048
  2. XANAX [Suspect]
     Indication: ANXIETY
     Route: 048
  3. TEMAZEPAM [Suspect]
     Route: 048
  4. AMBIEN [Suspect]
  5. ASA [Concomitant]
  6. CALCIUM [Concomitant]
  7. COLACE [Concomitant]
  8. ADVAIR DISKUS [Concomitant]
  9. MIRTAZAPINE [Concomitant]
  10. MVI [Concomitant]
  11. OMEPRAZILE [Concomitant]
  12. SIMVASTATIN [Concomitant]
  13. TAMSULOSIN [Concomitant]
  14. SPIRIVA [Concomitant]
  15. TRAZODONE [Concomitant]

REACTIONS (3)
  - Mental status changes [None]
  - Urinary tract infection [None]
  - Overdose [None]
